FAERS Safety Report 15494480 (Version 2)
Quarter: 2018Q4

REPORT INFORMATION
  Report Type: Report from Study
  Country: DE (occurrence: DE)
  Receive Date: 20181012
  Receipt Date: 20181022
  Transmission Date: 20190205
  Serious: Yes (Hospitalization)
  Sender: FDA-Public Use
  Company Number: DE-PFIZER INC-2018407543

PATIENT
  Age: 68 Year
  Sex: Female
  Weight: 86 kg

DRUGS (17)
  1. LEUCOVORIN. [Suspect]
     Active Substance: LEUCOVORIN
     Dosage: 680 MG, QCY
     Route: 042
     Dates: start: 20180910, end: 20180910
  2. BLINDED THERAPY [Suspect]
     Active Substance: INVESTIGATIONAL PRODUCT
     Dosage: 352 MG, QCY
     Route: 042
     Dates: start: 20180910, end: 20180910
  3. VIANI [Concomitant]
     Active Substance: FLUTICASONE PROPIONATE\SALMETEROL XINAFOATE
     Indication: ILL-DEFINED DISORDER
     Dosage: 250 UG, PRN
  4. SIMVASTATIN. [Concomitant]
     Active Substance: SIMVASTATIN
     Indication: ILL-DEFINED DISORDER
     Dosage: 20 MG, QD
  5. ALOXI [Concomitant]
     Active Substance: PALONOSETRON HYDROCHLORIDE
     Indication: PREMEDICATION
     Dosage: 500 UG, QOW
     Dates: start: 20180731
  6. OXALIPLATIN. [Suspect]
     Active Substance: OXALIPLATIN
     Indication: RECTAL CANCER
     Dosage: UNK UNK, QCY
     Route: 042
     Dates: start: 20180731, end: 20180731
  7. LISINOPRIL. [Concomitant]
     Active Substance: LISINOPRIL
     Indication: ADVERSE EVENT
     Dosage: 30 MG, QD
     Dates: start: 20180820
  8. OXALIPLATIN. [Suspect]
     Active Substance: OXALIPLATIN
     Dosage: 160 MG, QCY
     Route: 042
     Dates: start: 20180910, end: 20180910
  9. BLINDED THERAPY [Suspect]
     Active Substance: INVESTIGATIONAL PRODUCT
     Indication: RECTAL CANCER
     Dosage: UNK UNK, QCY
     Route: 042
     Dates: start: 20180731, end: 20180731
  10. FLUOROURACIL. [Suspect]
     Active Substance: FLUOROURACIL
     Indication: RECTAL CANCER
     Dosage: UNK UNK, QCY
     Route: 042
     Dates: start: 20180731, end: 20180731
  11. METFORMIN [Concomitant]
     Active Substance: METFORMIN HYDROCHLORIDE
     Indication: ILL-DEFINED DISORDER
     Dosage: 1000 MG, BID
  12. DEXAMETHASON [DEXAMETHASONE] [Concomitant]
     Active Substance: DEXAMETHASONE
     Indication: PREMEDICATION
     Dosage: 8 MG, QOW
     Dates: start: 20180731
  13. ALLOPURINOL. [Concomitant]
     Active Substance: ALLOPURINOL
     Indication: ILL-DEFINED DISORDER
     Dosage: 150 MG, QD
     Dates: start: 20180813, end: 20180908
  14. LEUCOVORIN. [Suspect]
     Active Substance: LEUCOVORIN
     Indication: RECTAL CANCER
     Dosage: UNK UNK, QCY
     Route: 042
     Dates: start: 20180731, end: 20180731
  15. IBUPROFEN. [Concomitant]
     Active Substance: IBUPROFEN
     Indication: ADVERSE EVENT
     Dosage: 600 MG, BID
     Dates: start: 20180813
  16. INSULIN BASAL [Concomitant]
     Active Substance: INSULIN NOS
     Dosage: UNK
  17. FLUOROURACIL. [Suspect]
     Active Substance: FLUOROURACIL
     Dosage: 5460 MG, QCY
     Route: 042
     Dates: start: 20180910, end: 20180910

REACTIONS (2)
  - Transient ischaemic attack [Recovered/Resolved]
  - Dyspnoea [Recovered/Resolved]

NARRATIVE: CASE EVENT DATE: 20180914
